FAERS Safety Report 6132255-X (Version None)
Quarter: 2009Q1

REPORT INFORMATION
  Report Type: 
  Country: None (occurrence: None)
  Receive Date: 20090325
  Receipt Date: 20090310
  Transmission Date: 20090719
  Serious: Yes (Death)
  Sender: FDA-Public Use
  Company Number: US-PFIZER INC-2008003597

PATIENT
  Age: 44 Year
  Sex: Female

DRUGS (4)
  1. PREGABALIN [Suspect]
     Route: 048
  2. OXYCODONE HCL [Suspect]
     Route: 048
  3. BENZODIAZEPINE DERIVATIVES [Suspect]
     Route: 048
  4. NAPROXEN [Suspect]
     Route: 048

REACTIONS (3)
  - CARDIAC ARREST [None]
  - INJURY [None]
  - RESPIRATORY ARREST [None]
